FAERS Safety Report 4724451-0 (Version None)
Quarter: 2005Q3

REPORT INFORMATION
  Report Type: 
  Country: None (occurrence: None)
  Receive Date: 20050721
  Receipt Date: 20050630
  Transmission Date: 20060218
  Serious: Yes (Other)
  Sender: FDA-Public Use
  Company Number: GBS050417205

PATIENT
  Age: 16 Year
  Sex: Male
  Weight: 55 kg

DRUGS (2)
  1. STRATTERA [Suspect]
     Indication: ATTENTION DEFICIT/HYPERACTIVITY DISORDER
     Dosage: 40 MG DAY
     Dates: start: 20041109, end: 20050607
  2. METHYLPHENIDATE HCL [Concomitant]

REACTIONS (20)
  - ABDOMINAL PAIN [None]
  - ALANINE AMINOTRANSFERASE INCREASED [None]
  - ANOREXIA [None]
  - ASPARTATE AMINOTRANSFERASE INCREASED [None]
  - BLOOD ALKALINE PHOSPHATASE INCREASED [None]
  - BLOOD BILIRUBIN INCREASED [None]
  - BLOOD BILIRUBIN UNCONJUGATED INCREASED [None]
  - CHROMATURIA [None]
  - DRUG DOSE OMISSION [None]
  - FATIGUE [None]
  - GAMMA-GLUTAMYLTRANSFERASE INCREASED [None]
  - GILBERT'S SYNDROME [None]
  - INFLUENZA LIKE ILLNESS [None]
  - JAUNDICE [None]
  - MALAISE [None]
  - NAUSEA [None]
  - PROTHROMBIN TIME PROLONGED [None]
  - PRURITUS [None]
  - RASH [None]
  - VOMITING [None]
